FAERS Safety Report 21022629 (Version 1)
Quarter: 2022Q2

REPORT INFORMATION
  Report Type: Spontaneous
  Country: US (occurrence: None)
  Receive Date: 20220628
  Receipt Date: 20220628
  Transmission Date: 20220721
  Serious: Yes (Hospitalization)
  Sender: FDA-Public Use
  Company Number: None

PATIENT
  Sex: Female

DRUGS (22)
  1. COSENTYX [Suspect]
     Active Substance: SECUKINUMAB
     Indication: Psoriasis
     Dosage: RX3: INJECT 2 PENS UNDER THE SKIN (SUBCUTANEOUS INJECTION) EVERY 28 DAYS AFTER WEEKLY LOADING?DOSES
     Route: 058
     Dates: start: 20220301
  2. AIMOVIG [Concomitant]
  3. AMITRIPTYLIN [Concomitant]
  4. COSENTYX [Concomitant]
  5. FUROSEMIDE [Concomitant]
     Active Substance: FUROSEMIDE
  6. HYDROXYZ HCL [Concomitant]
  7. LAMICTAL XR [Concomitant]
     Active Substance: LAMOTRIGINE
  8. LAMOTRIGINE [Concomitant]
  9. LEVOTHYROXINE [Concomitant]
     Active Substance: LEVOTHYROXINE
  10. NARCAN [Concomitant]
  11. OMEPRAZOLE [Concomitant]
  12. OXYBUTYNIN [Concomitant]
     Active Substance: OXYBUTYNIN
  13. PREDNISONE [Concomitant]
     Active Substance: PREDNISONE
  14. RANITIDINE [Concomitant]
     Active Substance: RANITIDINE
  15. SUMATRIPTAN [Concomitant]
  16. TALTZ [Concomitant]
     Active Substance: IXEKIZUMAB
  17. TAMSULOSIN [Concomitant]
  18. TOPIRAMATE [Concomitant]
     Active Substance: TOPIRAMATE
  19. TRIAMCINOLONE ACETONIDE [Concomitant]
  20. VALACYCLOVIR [Concomitant]
  21. ZENPEP [Concomitant]
  22. ZOLOFT [Concomitant]

REACTIONS (1)
  - Cholecystectomy [None]
